FAERS Safety Report 21208511 (Version 1)
Quarter: 2022Q3

REPORT INFORMATION
  Report Type: Report from Study
  Country: US (occurrence: US)
  Receive Date: 20220812
  Receipt Date: 20220812
  Transmission Date: 20221027
  Serious: Yes (Other)
  Sender: FDA-Public Use
  Company Number: US-UCBSA-2022044809

PATIENT
  Age: 12 Year
  Sex: Male
  Weight: 68.9 kg

DRUGS (9)
  1. LEVETIRACETAM [Suspect]
     Active Substance: LEVETIRACETAM
     Indication: Seizure
     Dosage: 500 MILLIGRAM, 2X/DAY (BID)
     Route: 048
  2. LEVETIRACETAM [Suspect]
     Active Substance: LEVETIRACETAM
     Dosage: 750 MILLIGRAM, 2X/DAY (BID)
     Route: 048
  3. LEVETIRACETAM [Suspect]
     Active Substance: LEVETIRACETAM
     Dosage: 1000 MILLIGRAM, 2X/DAY (BID)
     Route: 048
     Dates: start: 2019
  4. LEVETIRACETAM [Suspect]
     Active Substance: LEVETIRACETAM
     Dosage: 1000MG/1500MG
     Route: 048
     Dates: start: 202001
  5. LEVETIRACETAM [Suspect]
     Active Substance: LEVETIRACETAM
     Dosage: 1500 MILLIGRAM (1000MG 1.5 TABLETS), 2X/DAY (BID)
     Route: 048
     Dates: start: 2020
  6. KEPPRA [Suspect]
     Active Substance: LEVETIRACETAM
     Indication: Seizure
     Dosage: 4 MILLILITER, 2X/DAY (BID)
     Dates: start: 2014
  7. VIMPAT [Suspect]
     Active Substance: LACOSAMIDE
     Indication: Seizure
     Dosage: 100 MILLIGRAM, 2X/DAY (BID)
     Route: 048
     Dates: start: 202010
  8. VERSED [Concomitant]
     Active Substance: MIDAZOLAM HYDROCHLORIDE
     Indication: Seizure cluster
     Dosage: UNK
  9. NASONEX [Concomitant]
     Active Substance: MOMETASONE FUROATE
     Indication: Product used for unknown indication
     Dosage: UNK

REACTIONS (16)
  - Jeavons syndrome [Not Recovered/Not Resolved]
  - Insomnia [Recovering/Resolving]
  - Stress [Recovering/Resolving]
  - Vomiting [Recovered/Resolved]
  - Amnesia [Not Recovered/Not Resolved]
  - Concussion [Not Recovered/Not Resolved]
  - Cognitive disorder [Not Recovered/Not Resolved]
  - Tic [Recovered/Resolved]
  - Fall [Not Recovered/Not Resolved]
  - Aspartate aminotransferase increased [Not Recovered/Not Resolved]
  - Alanine aminotransferase increased [Recovered/Resolved]
  - Areflexia [Not Recovered/Not Resolved]
  - Sensory loss [Not Recovered/Not Resolved]
  - Eye injury [Not Recovered/Not Resolved]
  - Anticonvulsant drug level increased [Not Recovered/Not Resolved]
  - Product prescribing error [Unknown]

NARRATIVE: CASE EVENT DATE: 20150429
